FAERS Safety Report 9779825 (Version 2)
Quarter: 2014Q2

REPORT INFORMATION
  Report Type: Spontaneous
  Country: RU (occurrence: RU)
  Receive Date: 20131223
  Receipt Date: 20140407
  Transmission Date: 20141212
  Serious: Yes (Hospitalization, Other)
  Sender: FDA-Public Use
  Company Number: RU-GLAXOSMITHKLINE-B0955040A

PATIENT
  Age: 36 Year
  Sex: Female

DRUGS (6)
  1. LAMICTAL [Suspect]
     Indication: EPILEPSY
     Dosage: 375MG PER DAY
     Route: 065
  2. FENTANYL [Suspect]
     Indication: PAIN
     Route: 065
  3. VALPROIC ACID [Suspect]
     Indication: EPILEPSY
     Route: 065
  4. PHENYTOIN [Suspect]
     Indication: EPILEPSY
     Dosage: 300MG PER DAY
     Route: 065
  5. CLONAZEPAM [Suspect]
     Indication: EPILEPSY
     Route: 065
  6. LEVETIRACETAM [Suspect]
     Indication: EPILEPSY
     Dosage: 2000MG PER DAY
     Route: 065
     Dates: start: 200407

REACTIONS (8)
  - Polyneuropathy [Recovered/Resolved]
  - Thrombocytopenia [Recovered/Resolved]
  - Somnolence [Recovered/Resolved]
  - Liver function test abnormal [Recovered/Resolved]
  - Derealisation [Recovered/Resolved]
  - Overdose [Recovered/Resolved]
  - Exposure during pregnancy [Unknown]
  - Live birth [Unknown]
